FAERS Safety Report 17574331 (Version 1)
Quarter: 2020Q1

REPORT INFORMATION
  Report Type: Spontaneous
  Country: FR (occurrence: FR)
  Receive Date: 20200324
  Receipt Date: 20200324
  Transmission Date: 20200409
  Serious: Yes (Death, Other)
  Sender: FDA-Public Use
  Company Number: FR-AUROBINDO-AUR-APL-2020-014918

PATIENT
  Age: 70 Year
  Sex: Male

DRUGS (2)
  1. CEFTRIAXONE. [Suspect]
     Active Substance: CEFTRIAXONE
     Indication: PYREXIA
     Dosage: 2 GRAM, ONCE A DAY
     Route: 041
     Dates: start: 20190630
  2. AMOXICILLIN. [Suspect]
     Active Substance: AMOXICILLIN
     Indication: PYREXIA
     Dosage: 6 GRAM, ONCE A DAY (THEN 12 G / 24 H FROM 30/06)
     Route: 041
     Dates: start: 20190629

REACTIONS (2)
  - Acute kidney injury [Fatal]
  - Overdose [Not Recovered/Not Resolved]

NARRATIVE: CASE EVENT DATE: 20190703
